FAERS Safety Report 8885037 (Version 2)
Quarter: 2012Q4

REPORT INFORMATION
  Report Type: 
  Country: US (occurrence: US)
  Receive Date: 20121105
  Receipt Date: 20121122
  Transmission Date: 20130627
  Serious: Yes (Hospitalization)
  Sender: FDA-Public Use
  Company Number: US-BIOGENIDEC-2012BI048484

PATIENT
  Age: 66 Year
  Sex: Female

DRUGS (1)
  1. AVONEX [Suspect]
     Indication: MULTIPLE SCLEROSIS
     Route: 030
     Dates: start: 20040401, end: 20120915

REACTIONS (6)
  - Atypical pneumonia [Recovered/Resolved]
  - Diverticulitis [Recovered/Resolved]
  - Ear pain [Unknown]
  - Gastrooesophageal reflux disease [Recovered/Resolved]
  - Influenza [Recovered/Resolved]
  - Headache [Recovered/Resolved]
